FAERS Safety Report 8578158 (Version 5)
Quarter: 2012Q4

REPORT INFORMATION
  Report Type: 
  Country: US (occurrence: US)
  Receive Date: 20120524
  Receipt Date: 20120920
  Transmission Date: 20130627
  Serious: Yes (Hospitalization)
  Sender: FDA-Public Use
  Company Number: US-ASTRAZENECA-2012SE31649

PATIENT
  Age: 26 Year
  Sex: Female
  Weight: 117 kg

DRUGS (8)
  1. PRILOSEC [Suspect]
     Route: 048
  2. PRILOSEC OTC [Suspect]
     Indication: DYSPEPSIA
     Dosage: ONCE OR TWICE DAILY
     Route: 048
  3. PHENERGAN [Concomitant]
  4. PRENATAL VITAMINS [Concomitant]
  5. FLORICET [Concomitant]
  6. ZITHROMAX [Concomitant]
     Indication: BRONCHITIS
     Dates: start: 20111207, end: 20111212
  7. SIMVASTATIN [Concomitant]
     Indication: BLOOD CHOLESTEROL INCREASED
  8. FLUOXETINE [Concomitant]
     Indication: DEPRESSION

REACTIONS (5)
  - Exposure during pregnancy [Unknown]
  - Vomiting [Unknown]
  - Headache [Unknown]
  - Nerve compression [Unknown]
  - Off label use [Unknown]
